FAERS Safety Report 4383905-X (Version None)
Quarter: 2004Q2

REPORT INFORMATION
  Report Type: 
  Country: None (occurrence: None)
  Receive Date: 20040621
  Receipt Date: 20040610
  Transmission Date: 20050107
  Serious: Yes (Hospitalization)
  Sender: FDA-Public Use
  Company Number: 2004218497US

PATIENT
  Age: 51 Year
  Sex: Female

DRUGS (1)
  1. CELEBREX [Suspect]
     Indication: PAIN
     Dosage: 200 MG, QD, ORAL
     Route: 048
     Dates: start: 20040605, end: 20040605

REACTIONS (6)
  - BLOOD PRESSURE DECREASED [None]
  - BODY TEMPERATURE DECREASED [None]
  - ERYTHEMA [None]
  - HYPERSENSITIVITY [None]
  - LOSS OF CONSCIOUSNESS [None]
  - RASH [None]
